FAERS Safety Report 8379008-X (Version None)
Quarter: 2012Q2

REPORT INFORMATION
  Report Type: 
  Country: None (occurrence: None)
  Receive Date: 20120523
  Receipt Date: 20120411
  Transmission Date: 20120825
  Serious: No
  Sender: FDA-Public Use
  Company Number: US-PFIZER INC-2012121230

PATIENT
  Age: 57 Year
  Sex: Female

DRUGS (3)
  1. DESIPRAMINE HYDROCHLORIDE [Suspect]
     Dosage: 10 MG, UNK
  2. DOXEPIN HCL [Suspect]
     Dosage: UNK
  3. EFFEXOR XR [Suspect]
     Dosage: 75 MG, UNK

REACTIONS (2)
  - DRUG INEFFECTIVE [None]
  - MIGRAINE [None]
